FAERS Safety Report 17153830 (Version 1)
Quarter: 2019Q4

REPORT INFORMATION
  Report Type: Spontaneous
  Country: CZ (occurrence: CZ)
  Receive Date: 20191213
  Receipt Date: 20191213
  Transmission Date: 20200122
  Serious: Yes (Other)
  Sender: FDA-Public Use
  Company Number: CZ-MYLANLABS-2019M1122726

PATIENT
  Sex: Female

DRUGS (8)
  1. VECTIBIX [Suspect]
     Active Substance: PANITUMUMAB
     Indication: ADENOCARCINOMA OF COLON
     Dosage: UNK
     Dates: start: 201711
  2. FOLINIC ACID [Concomitant]
     Active Substance: LEUCOVORIN
     Indication: ADENOCARCINOMA OF COLON
     Dosage: UNK
  3. 5-FU                               /00098801/ [Suspect]
     Active Substance: FLUOROURACIL
     Indication: ADENOCARCINOMA OF COLON
     Dosage: UNK (REDUCTION OF DOSE TO 80%)
     Route: 065
     Dates: start: 201803
  4. VECTIBIX [Suspect]
     Active Substance: PANITUMUMAB
     Indication: ADENOCARCINOMA OF COLON
     Dosage: UNK UNK, CYCLICAL
     Route: 065
     Dates: start: 201711
  5. OXALIPLATIN. [Suspect]
     Active Substance: OXALIPLATIN
     Indication: ADENOCARCINOMA OF COLON
     Dosage: UNK (REDUCTION OF DOSE TO 75 %)
     Route: 065
     Dates: start: 201711
  6. OXALIPLATIN. [Suspect]
     Active Substance: OXALIPLATIN
     Indication: ADENOCARCINOMA OF COLON
     Dosage: UNK UNK, CYCLICAL
     Route: 065
     Dates: start: 201711
  7. 5-FU                               /00098801/ [Suspect]
     Active Substance: FLUOROURACIL
     Indication: ADENOCARCINOMA OF COLON
     Dosage: REDUCED TO 80%
     Route: 065
     Dates: start: 201711
  8. FOLINIC ACID [Concomitant]
     Active Substance: LEUCOVORIN
     Indication: ADENOCARCINOMA OF COLON
     Dosage: UNK UNK, CYCLICAL
     Dates: start: 201711

REACTIONS (5)
  - Paronychia [Recovered/Resolved]
  - Neutropenia [Recovered/Resolved]
  - Rash maculo-papular [Not Recovered/Not Resolved]
  - Hypomagnesaemia [Recovered/Resolved]
  - Anaemia [Recovered/Resolved]

NARRATIVE: CASE EVENT DATE: 2017
